FAERS Safety Report 11645328 (Version 1)
Quarter: 2015Q4

REPORT INFORMATION
  Report Type: Spontaneous
  Country: US (occurrence: QA)
  Receive Date: 20151020
  Receipt Date: 20151020
  Transmission Date: 20160304
  Serious: Yes (Disabling)
  Sender: FDA-Public Use
  Company Number: US-BAYER-2015-441626

PATIENT
  Age: 41 Year
  Sex: Female
  Weight: 72.56 kg

DRUGS (1)
  1. CIPROBAY 500 [Suspect]
     Active Substance: CIPROFLOXACIN
     Indication: URINARY TRACT INFECTION
     Dosage: 500 MG, BID
     Route: 048
     Dates: start: 19990501, end: 19991101

REACTIONS (15)
  - Gastritis [None]
  - Tinnitus [None]
  - Balance disorder [None]
  - Arthralgia [None]
  - Photophobia [None]
  - Nausea [None]
  - Vomiting [None]
  - Visual impairment [None]
  - Gastrointestinal disorder [None]
  - Deafness bilateral [None]
  - Inner ear disorder [None]
  - Pain in extremity [None]
  - Hiatus hernia [None]
  - Dizziness [None]
  - Diplopia [None]

NARRATIVE: CASE EVENT DATE: 19990701
